FAERS Safety Report 24640532 (Version 1)
Quarter: 2024Q4

REPORT INFORMATION
  Report Type: Spontaneous
  Country: US (occurrence: US)
  Receive Date: 20241120
  Receipt Date: 20241120
  Transmission Date: 20250115
  Serious: Yes (Other)
  Sender: TWI PHARMACEUTICALS
  Company Number: US-TWI PHARMACEUTICAL, INC-20241100223

PATIENT
  Age: 35 Year
  Sex: Male

DRUGS (3)
  1. BUPROPION HYDROCHLORIDE XL [Suspect]
     Active Substance: BUPROPION HYDROCHLORIDE
     Indication: Product used for unknown indication
     Dosage: UNK
  2. NALOXONE [Concomitant]
     Active Substance: NALOXONE
     Indication: Pneumonia aspiration
     Dosage: UNK
     Route: 065
  3. PIPERACILLIN SODIUM\TAZOBACTAM SODIUM [Concomitant]
     Active Substance: PIPERACILLIN SODIUM\TAZOBACTAM SODIUM
     Indication: Pneumonia aspiration
     Dosage: UNK
     Route: 065

REACTIONS (3)
  - Pulmonary alveolar haemorrhage [Recovered/Resolved]
  - Wrong technique in product usage process [Unknown]
  - Incorrect route of product administration [Unknown]
